FAERS Safety Report 7684380-X (Version None)
Quarter: 2011Q3

REPORT INFORMATION
  Report Type: 
  Country: None (occurrence: None)
  Receive Date: 20110816
  Receipt Date: 20110808
  Transmission Date: 20111222
  Serious: Yes (Hospitalization)
  Sender: FDA-Public Use
  Company Number: US-BIOGENIDEC-2011BI030298

PATIENT
  Age: 36 Year
  Sex: Female

DRUGS (1)
  1. TYSABRI [Suspect]
     Indication: MULTIPLE SCLEROSIS
     Route: 042
     Dates: start: 20080722

REACTIONS (5)
  - MENORRHAGIA [None]
  - DEPRESSED LEVEL OF CONSCIOUSNESS [None]
  - POOR VENOUS ACCESS [None]
  - HAEMOPTYSIS [None]
  - BLOOD PRESSURE DECREASED [None]
